FAERS Safety Report 7602951-3 (Version None)
Quarter: 2011Q3

REPORT INFORMATION
  Report Type: 
  Country: None (occurrence: None)
  Receive Date: 20110712
  Receipt Date: 20110325
  Transmission Date: 20111222
  Serious: No
  Sender: FDA-Public Use
  Company Number: A0920077A

PATIENT
  Age: 50 Year
  Sex: Male

DRUGS (2)
  1. DEXLANSOPRAZOLE [Concomitant]
  2. JALYN [Suspect]
     Dosage: 5MG PER DAY
     Route: 048
     Dates: start: 20110323, end: 20110325

REACTIONS (4)
  - BACK PAIN [None]
  - RETCHING [None]
  - VOMITING [None]
  - ABDOMINAL PAIN UPPER [None]
